FAERS Safety Report 16722629 (Version 1)
Quarter: 2019Q3

REPORT INFORMATION
  Report Type: Spontaneous
  Country: US (occurrence: US)
  Receive Date: 20190820
  Receipt Date: 20190820
  Transmission Date: 20191005
  Serious: No
  Sender: FDA-Public Use
  Company Number: US-009507513-1908USA007124

PATIENT
  Age: 27 Year
  Sex: Female

DRUGS (2)
  1. NUVARING [Suspect]
     Active Substance: ETHINYL ESTRADIOL\ETONOGESTREL
     Indication: ANXIETY
     Dosage: 1 RING
     Route: 067
     Dates: start: 201903
  2. NUVARING [Suspect]
     Active Substance: ETHINYL ESTRADIOL\ETONOGESTREL
     Indication: CONTRACEPTION

REACTIONS (4)
  - Product use in unapproved indication [Unknown]
  - Vaginal haemorrhage [Not Recovered/Not Resolved]
  - Incorrect product administration duration [Unknown]
  - Product prescribing error [Unknown]

NARRATIVE: CASE EVENT DATE: 201903
